FAERS Safety Report 18366329 (Version 1)
Quarter: 2020Q4

REPORT INFORMATION
  Report Type: Spontaneous
  Country: GB (occurrence: CN)
  Receive Date: 20201009
  Receipt Date: 20201009
  Transmission Date: 20210114
  Serious: Yes (Other)
  Sender: FDA-Public Use
  Company Number: CN-ASTELLAS-2020US035074

PATIENT
  Age: 51 Year
  Sex: Female

DRUGS (3)
  1. ERLOTINIB [Suspect]
     Active Substance: ERLOTINIB
     Indication: LUNG ADENOCARCINOMA
     Route: 065
  2. PREDNISONE. [Concomitant]
     Active Substance: PREDNISONE
     Indication: SJOGREN^S SYNDROME
     Dosage: UNK UNK, UNKNOWN FREQ.
     Route: 065
  3. EUTHYROX [Concomitant]
     Active Substance: LEVOTHYROXINE SODIUM
     Indication: HYPOTHYROIDISM
     Dosage: UNK, UNKNOWN FREQ.
     Route: 048

REACTIONS (6)
  - Corneal perforation [Recovered/Resolved]
  - Iridocele [Recovered/Resolved]
  - Keratitis fungal [Recovered/Resolved]
  - Persistent corneal epithelial defect [Recovered/Resolved]
  - Visual impairment [Recovered/Resolved]
  - Ulcerative keratitis [Recovered/Resolved]
